FAERS Safety Report 6027922-2 (Version None)
Quarter: 2009Q1

REPORT INFORMATION
  Report Type: 
  Country: None (occurrence: None)
  Receive Date: 20090105
  Receipt Date: 20081226
  Transmission Date: 20090719
  Serious: Yes (Other)
  Sender: FDA-Public Use
  Company Number: PHHY2008JP33318

PATIENT
  Age: 82 Year
  Sex: Female

DRUGS (2)
  1. VOLTAREN [Suspect]
     Indication: ANALGESIA
     Dosage: EVERY 8 HOURS FOR 2 DAYS
     Route: 054
  2. CARDIAC DRUGS [Concomitant]

REACTIONS (2)
  - HALLUCINATION [None]
  - SPEECH DISORDER [None]
